FAERS Safety Report 11669522 (Version 1)
Quarter: 2015Q4

REPORT INFORMATION
  Report Type: Spontaneous
  Country: US (occurrence: US)
  Receive Date: 20151027
  Receipt Date: 20151027
  Transmission Date: 20160304
  Serious: No
  Sender: FDA-Public Use
  Company Number: US-ELI_LILLY_AND_COMPANY-US201002001860

PATIENT
  Age: 83 Year
  Sex: Female
  Weight: 69.84 kg

DRUGS (20)
  1. VITAMIN B COMPLEX [Concomitant]
     Active Substance: CYANOCOBALAMIN\DEXPANTHENOL\NIACINAMIDE\PYRIDOXINE HYDROCHLORIDE\RIBOFLAVIN 5^-PHOSPHATE SODIUM\THIAMINE HYDROCHLORIDE\VITAMIN B COMPLEX
  2. CALCIUM [Concomitant]
     Active Substance: CALCIUM
     Dosage: UNK, 3/D
     Dates: end: 20080714
  3. VITAMIN C [Concomitant]
     Active Substance: ASCORBIC ACID
     Dosage: 500 MG, UNK
  4. ASPIRIN. [Concomitant]
     Active Substance: ASPIRIN
     Dosage: 81 MG, EACH EVENING
  5. CALCIUM [Concomitant]
     Active Substance: CALCIUM
     Dosage: UNK, 2/D
     Dates: start: 20080715
  6. FORTEO [Suspect]
     Active Substance: TERIPARATIDE
     Indication: OSTEOPOROSIS
     Dosage: 20 UG, DAILY (1/D)
     Dates: start: 20080217, end: 200901
  7. SPIRIVA [Concomitant]
     Active Substance: TIOTROPIUM BROMIDE MONOHYDRATE
     Dosage: UNK, EACH MORNING
  8. VITAMIN D [Concomitant]
     Active Substance: CHOLECALCIFEROL
     Dosage: 2800 IU, DAILY (1/D)
  9. SYNTHROID [Concomitant]
     Active Substance: LEVOTHYROXINE SODIUM
     Dosage: 88 UG, DAILY (1/D)
  10. METFORMIN [Concomitant]
     Active Substance: METFORMIN HYDROCHLORIDE
     Dosage: 500 MG, 2/D
  11. FORTEO [Suspect]
     Active Substance: TERIPARATIDE
     Dosage: 20 UG, QOD
     Dates: start: 200907
  12. NYSTATIN. [Concomitant]
     Active Substance: NYSTATIN
     Dosage: UNK, AS NEEDED
  13. LISINOPRIL. [Concomitant]
     Active Substance: LISINOPRIL
     Dosage: 40 MG, EACH EVENING
  14. ASMANEX [Concomitant]
     Active Substance: MOMETASONE FUROATE
     Dosage: UNK, EACH EVENING
  15. BIOTENE [Concomitant]
     Dosage: 2.5 MG, DAILY (1/D)
  16. CO-Q10 [Concomitant]
     Dosage: 200 MG, 2/D
  17. FORTEO [Suspect]
     Active Substance: TERIPARATIDE
     Dosage: 20 UG, DAILY (1/D)
     Dates: end: 200907
  18. MULTIVITAMIN [Concomitant]
     Active Substance: VITAMINS
  19. ALTOPREV [Concomitant]
     Active Substance: LOVASTATIN
     Dosage: 60 MG, UNK
  20. CALCIUM [Concomitant]
     Active Substance: CALCIUM
     Dosage: 1400 MG, DAILY (1/D)

REACTIONS (10)
  - Drug dose omission [Unknown]
  - Vocal cord disorder [Unknown]
  - Hand fracture [Recovered/Resolved]
  - Cholelithiasis [Unknown]
  - Muscle spasms [Unknown]
  - Spider vein [Unknown]
  - Hypercalcaemia [Recovered/Resolved]
  - Trigger finger [Unknown]
  - Laryngitis [Unknown]
  - Drug prescribing error [Not Recovered/Not Resolved]

NARRATIVE: CASE EVENT DATE: 2008
